FAERS Safety Report 21300815 (Version 1)
Quarter: 2022Q3

REPORT INFORMATION
  Report Type: Spontaneous
  Country: CH (occurrence: CH)
  Receive Date: 20220907
  Receipt Date: 20220907
  Transmission Date: 20221027
  Serious: Yes (Other)
  Sender: FDA-Public Use
  Company Number: None

PATIENT
  Age: 68 Year
  Sex: Male

DRUGS (2)
  1. MABTHERA [Suspect]
     Active Substance: RITUXIMAB
     Indication: Myasthenia gravis
     Dosage: JE 1000 MG I.V. WURDEN VERABREICHT AM:? 29.12.2020, 26.01.2021, 22.06.2021 UND 24.02.2022. (DIE L...
     Route: 041
     Dates: start: 20201229, end: 20220224
  2. MESTINON [Concomitant]
     Active Substance: PYRIDOSTIGMINE BROMIDE
     Indication: Myasthenia gravis
     Route: 048
     Dates: start: 20200915

REACTIONS (1)
  - Metastatic malignant melanoma [Not Recovered/Not Resolved]

NARRATIVE: CASE EVENT DATE: 20220701
